FAERS Safety Report 4792356-5 (Version None)
Quarter: 2005Q4

REPORT INFORMATION
  Report Type: 
  Country: None (occurrence: None)
  Receive Date: 20051010
  Receipt Date: 20050930
  Transmission Date: 20060501
  Serious: Yes (Hospitalization)
  Sender: FDA-Public Use
  Company Number: JP-BOEHRINGER INGELHEIM PHARMACEUTICALS, INC.-2005-BP-17467NB

PATIENT
  Age: 36 Year
  Sex: Female

DRUGS (6)
  1. SPIRIVA [Suspect]
     Indication: BRONCHITIS CHRONIC
     Route: 055
     Dates: start: 20050808, end: 20050920
  2. THEOLONG [Concomitant]
     Route: 048
     Dates: start: 20050802, end: 20050920
  3. MEPTIN [Concomitant]
     Route: 065
     Dates: start: 20050802, end: 20050920
  4. SINGULAIR [Concomitant]
     Route: 048
     Dates: start: 20050802, end: 20050920
  5. CLARITIN [Concomitant]
     Route: 048
     Dates: start: 20050802, end: 20050920
  6. HALCION [Concomitant]
     Route: 048

REACTIONS (1)
  - HEPATIC FUNCTION ABNORMAL [None]
